FAERS Safety Report 5857315-X (Version None)
Quarter: 2008Q3

REPORT INFORMATION
  Report Type: 
  Country: None (occurrence: None)
  Receive Date: 20080826
  Receipt Date: 20080812
  Transmission Date: 20090109
  Serious: Yes (Hospitalization)
  Sender: FDA-Public Use
  Company Number: US-ROCHE-580556

PATIENT
  Age: 43 Year
  Sex: Male

DRUGS (14)
  1. FUZEON [Suspect]
     Indication: HIV INFECTION
     Route: 065
     Dates: start: 20070729
  2. PREZISTA [Suspect]
     Indication: HIV INFECTION
     Route: 048
     Dates: start: 20070729, end: 20070808
  3. KALETRA [Suspect]
     Indication: HIV INFECTION
     Route: 065
     Dates: start: 20050301
  4. RITONAVIR [Suspect]
     Indication: HIV INFECTION
     Route: 048
     Dates: start: 20070729
  5. MK-0518 [Suspect]
     Indication: HIV INFECTION
     Route: 048
     Dates: start: 20080729
  6. TRUVADA [Suspect]
     Indication: HIV INFECTION
     Route: 065
     Dates: start: 20050301
  7. COMBIVIR [Suspect]
     Indication: HIV INFECTION
     Route: 048
     Dates: start: 20070729
  8. TENOFOVIR [Suspect]
     Indication: HIV INFECTION
     Route: 048
     Dates: start: 20070729
  9. DAPSONE [Concomitant]
     Dates: start: 20060101
  10. FERROUS SULFATE TAB [Concomitant]
     Dates: start: 20070701
  11. DIFLUCAN [Concomitant]
     Dates: start: 20030101
  12. NAPROSYN [Concomitant]
     Dates: start: 20070725
  13. LANTUS [Concomitant]
     Dates: start: 20060101
  14. AZITHROMYCIN [Concomitant]
     Dates: start: 20030101

REACTIONS (11)
  - ADRENAL INSUFFICIENCY [None]
  - BLOOD ALKALINE PHOSPHATASE INCREASED [None]
  - CLOSTRIDIUM DIFFICILE COLITIS [None]
  - DEHYDRATION [None]
  - HEADACHE [None]
  - HYPOTENSION [None]
  - LIVER FUNCTION TEST ABNORMAL [None]
  - NAUSEA [None]
  - PYREXIA [None]
  - RENAL FAILURE ACUTE [None]
  - SEPSIS [None]
